FAERS Safety Report 24933937 (Version 1)
Quarter: 2025Q1

REPORT INFORMATION
  Report Type: Report from Study
  Country: US (occurrence: US)
  Receive Date: 20250206
  Receipt Date: 20250206
  Transmission Date: 20250409
  Serious: Yes (Other)
  Sender: EXELIXIS
  Company Number: US-EXELIXIS-CABO-24076204

PATIENT
  Age: 45 Year
  Sex: Female

DRUGS (9)
  1. CABOMETYX [Suspect]
     Active Substance: CABOZANTINIB S-MALATE
     Indication: Malignant melanoma
     Dosage: 40 MG, QD
     Dates: start: 20240401, end: 20240408
  2. BRAFTOVI [Concomitant]
     Active Substance: ENCORAFENIB
  3. POTASSIUM [Concomitant]
     Active Substance: POTASSIUM
  4. LEVOTHYROXINE [Concomitant]
     Active Substance: LEVOTHYROXINE
  5. HYDROCORTISONE [Concomitant]
     Active Substance: HYDROCORTISONE
  6. DIETARY SUPPLEMENT [Concomitant]
     Active Substance: DIETARY SUPPLEMENT
  7. PROTEIN [Concomitant]
     Active Substance: PROTEIN
  8. MEKTOVI [Concomitant]
     Active Substance: BINIMETINIB
  9. LOSARTAN [Concomitant]
     Active Substance: LOSARTAN

REACTIONS (6)
  - Malignant neoplasm progression [Not Recovered/Not Resolved]
  - Rash [Recovering/Resolving]
  - Pain in extremity [Recovering/Resolving]
  - Ageusia [Not Recovered/Not Resolved]
  - Skin exfoliation [Not Recovered/Not Resolved]
  - Off label use [Unknown]

NARRATIVE: CASE EVENT DATE: 20240422
